FAERS Safety Report 16161976 (Version 7)
Quarter: 2020Q1

REPORT INFORMATION
  Report Type: Report from Study
  Country: DE (occurrence: DE)
  Receive Date: 20190405
  Receipt Date: 20200128
  Transmission Date: 20200409
  Serious: Yes (Hospitalization)
  Sender: FDA-Public Use
  Company Number: DE-EISAI MEDICAL RESEARCH-EC-2019-054443

PATIENT
  Age: 76 Year
  Sex: Female
  Weight: 68 kg

DRUGS (1)
  1. HALAVEN [Suspect]
     Active Substance: ERIBULIN MESYLATE
     Indication: BREAST CANCER METASTATIC
     Route: 041
     Dates: start: 20190311, end: 20191209

REACTIONS (11)
  - Oral candidiasis [Recovered/Resolved]
  - Grip strength decreased [Not Recovered/Not Resolved]
  - Urinary tract infection [Recovered/Resolved]
  - Pain in extremity [Not Recovered/Not Resolved]
  - General physical condition abnormal [Recovered/Resolved]
  - Febrile neutropenia [Recovered/Resolved]
  - Asthenia [Recovered/Resolved]
  - Dizziness [Not Recovered/Not Resolved]
  - Muscle spasms [Not Recovered/Not Resolved]
  - Pneumonia [Recovered/Resolved]
  - Dehydration [Recovered/Resolved]

NARRATIVE: CASE EVENT DATE: 20190317
